FAERS Safety Report 8049501-8 (Version None)
Quarter: 2012Q1

REPORT INFORMATION
  Report Type: 
  Country: None (occurrence: None)
  Receive Date: 20120117
  Receipt Date: 20120109
  Transmission Date: 20120608
  Serious: Yes (Hospitalization, Other)
  Sender: FDA-Public Use
  Company Number: ZA-ABBOTT-12P-143-0893078-00

PATIENT
  Sex: Female

DRUGS (1)
  1. HUMIRA [Suspect]
     Indication: CROHN'S DISEASE
     Route: 058
     Dates: start: 20100101

REACTIONS (6)
  - CROHN'S DISEASE [None]
  - BLOOD ALBUMIN DECREASED [None]
  - MALAISE [None]
  - HEPATOMEGALY [None]
  - LYMPHADENOPATHY [None]
  - WEIGHT DECREASED [None]
